FAERS Safety Report 21995749 (Version 1)
Quarter: 2023Q1

REPORT INFORMATION
  Report Type: Spontaneous
  Country: US (occurrence: None)
  Receive Date: 20230214
  Receipt Date: 20230214
  Transmission Date: 20230418
  Serious: No
  Sender: FDA-Public Use
  Company Number: None

PATIENT
  Age: 71 Year
  Sex: Male
  Weight: 143.24 kg

DRUGS (11)
  1. ABIRATERONE ACETATE [Suspect]
     Active Substance: ABIRATERONE ACETATE
     Dosage: FREQUENCY : DAILY;?
     Route: 048
  2. CENTRUM SILVER [Concomitant]
  3. HYDROCODONE-ACETAMINOPHEN [Concomitant]
  4. IBUPROFEN [Concomitant]
  5. LOSARTAN POTASSIUM [Concomitant]
  6. LUPRON [Concomitant]
     Active Substance: LEUPROLIDE ACETATE
  7. METOPROLOL SUCCINATE ER [Concomitant]
  8. CALCIUM\VITAMIN D [Concomitant]
     Active Substance: CALCIUM\VITAMIN D
  9. PREDNISONE [Concomitant]
  10. VERAPAMIL HCI ER [Concomitant]
  11. WARFARIN [Concomitant]

REACTIONS (3)
  - Disease progression [None]
  - Therapy change [None]
  - Prostatic specific antigen increased [None]
